FAERS Safety Report 5605769-6 (Version None)
Quarter: 2008Q1

REPORT INFORMATION
  Report Type: 
  Country: None (occurrence: None)
  Receive Date: 20080129
  Receipt Date: 20080118
  Transmission Date: 20080703
  Serious: Yes (Hospitalization)
  Sender: FDA-Public Use
  Company Number: GB-ROCHE-531028

PATIENT
  Age: 39 Year
  Sex: Male
  Weight: 115.4 kg

DRUGS (5)
  1. ORLISTAT [Suspect]
     Indication: OBESITY
     Route: 048
     Dates: start: 20070606, end: 20071020
  2. CITALOPRAM HYDROBROMIDE [Concomitant]
     Indication: DEPRESSION
     Route: 048
     Dates: start: 20061001
  3. ATENDOL [Concomitant]
     Indication: CHEST PAIN
     Route: 048
     Dates: start: 20070901
  4. SIMVASTATIN [Concomitant]
     Indication: CHEST PAIN
     Route: 048
     Dates: start: 20071017
  5. ASPIRIN [Concomitant]
     Indication: CHEST PAIN
     Route: 048
     Dates: start: 20071017

REACTIONS (1)
  - ANGINA PECTORIS [None]
